FAERS Safety Report 9701945 (Version 1)
Quarter: 2013Q4

REPORT INFORMATION
  Report Type: Spontaneous
  Country: CH (occurrence: None)
  Receive Date: 20131120
  Receipt Date: 20131120
  Transmission Date: 20140711
  Serious: Yes (Disabling, Other)
  Sender: FDA-Public Use
  Company Number: 20130650

PATIENT
  Age: 71 Year
  Sex: Male
  Weight: 58.5 kg

DRUGS (1)
  1. FERINJECT [Suspect]
     Indication: IRON DEFICIENCY ANAEMIA
     Dates: start: 20120316, end: 20121010

REACTIONS (5)
  - Haemochromatosis [None]
  - Arthralgia [None]
  - Gait disturbance [None]
  - Iron overload [None]
  - Hypophosphataemia [None]
